FAERS Safety Report 7096032-8 (Version None)
Quarter: 2010Q4

REPORT INFORMATION
  Report Type: 
  Country: None (occurrence: None)
  Receive Date: 20101101
  Receipt Date: 20101019
  Transmission Date: 20110411
  Serious: Yes (Other)
  Sender: FDA-Public Use
  Company Number: MSER20100027

PATIENT
  Age: 26 Year
  Sex: Male
  Weight: 113 kg

DRUGS (2)
  1. MORPHINE SUL TAB [Suspect]
     Indication: ANALGESIC THERAPY
     Dosage: ORAL
     Route: 048
  2. FENTANYL [Suspect]
     Indication: ANALGESIC THERAPY
     Dosage: 100 UG EVERY THREE DAYS, TRANSDERMAL
     Route: 062

REACTIONS (4)
  - FALL [None]
  - HYPERSOMNIA [None]
  - RAPID EYE MOVEMENTS SLEEP ABNORMAL [None]
  - SLEEP APNOEA SYNDROME [None]
